FAERS Safety Report 7899304-X (Version None)
Quarter: 2011Q4

REPORT INFORMATION
  Report Type: 
  Country: None (occurrence: None)
  Receive Date: 20111107
  Receipt Date: 20110913
  Transmission Date: 20120403
  Serious: No
  Sender: FDA-Public Use
  Company Number: US-AMGEN-USASP2011046937

PATIENT
  Age: 56 Year
  Sex: Female
  Weight: 54.422 kg

DRUGS (9)
  1. FOLIC ACID [Concomitant]
     Dosage: 1 MG, UNK
  2. ENBREL [Suspect]
     Indication: PRODUCT USED FOR UNKNOWN INDICATION
     Dosage: 50 MG, QWK
  3. TRIAMTERENE AND HYDROCHLOROTHIAZIDE [Concomitant]
     Dosage: 25 UNK, UNK
  4. VITAMIN D [Concomitant]
  5. AMBIEN CR [Concomitant]
     Dosage: 12.5 MG, UNK
  6. DIOVAN [Concomitant]
     Dosage: 80 MG, UNK
  7. CALCIUM [Concomitant]
  8. POTASSIUM [Concomitant]
     Dosage: 75 MG, UNK
  9. METHOTREXATE [Concomitant]
     Dosage: 2.5 MG, UNK

REACTIONS (1)
  - INJECTION SITE REACTION [None]
